FAERS Safety Report 12155109 (Version 2)
Quarter: 2016Q3

REPORT INFORMATION
  Report Type: Spontaneous
  Country: GB (occurrence: GB)
  Receive Date: 20160307
  Receipt Date: 20160805
  Transmission Date: 20161109
  Serious: Yes (Hospitalization, Disabling, Other)
  Sender: FDA-Public Use
  Company Number: GB-ABBVIE-16K-167-1570969-00

PATIENT
  Age: 35 Year
  Sex: Female

DRUGS (5)
  1. METHOTREXATE. [Suspect]
     Active Substance: METHOTREXATE
     Indication: PSORIATIC ARTHROPATHY
     Route: 065
  2. INFLIXIMAB RECOMBINANT [Suspect]
     Active Substance: INFLIXIMAB
     Indication: PSORIATIC ARTHROPATHY
     Route: 042
  3. HUMIRA [Suspect]
     Active Substance: ADALIMUMAB
     Indication: PSORIATIC ARTHROPATHY
     Route: 058
  4. METHOTREXATE. [Suspect]
     Active Substance: METHOTREXATE
     Route: 065
  5. HUMIRA [Suspect]
     Active Substance: ADALIMUMAB
     Indication: COLITIS
     Route: 058

REACTIONS (11)
  - Psoriatic arthropathy [Unknown]
  - Off label use [Unknown]
  - Drug effect incomplete [Unknown]
  - Antinuclear antibody positive [Unknown]
  - Rash [Unknown]
  - Hepatic steatosis [Unknown]
  - Lupus-like syndrome [Not Recovered/Not Resolved]
  - Mobility decreased [Unknown]
  - Double stranded DNA antibody positive [Unknown]
  - Complement factor decreased [Unknown]
  - Alanine aminotransferase increased [Unknown]
